FAERS Safety Report 17499571 (Version 1)
Quarter: 2020Q1

REPORT INFORMATION
  Report Type: Spontaneous
  Country: GB (occurrence: GB)
  Receive Date: 20200305
  Receipt Date: 20200305
  Transmission Date: 20200409
  Serious: Yes (Other)
  Sender: FDA-Public Use
  Company Number: GB-AMGEN-GBRSP2020036313

PATIENT
  Age: 54 Year
  Sex: Female

DRUGS (4)
  1. TAMOXIFEN CITRATE. [Concomitant]
     Active Substance: TAMOXIFEN CITRATE
     Dosage: UNK
  2. PREDNISOLONE ACETATE. [Concomitant]
     Active Substance: PREDNISOLONE ACETATE
     Dosage: UNK
  3. ETANERCEPT [Suspect]
     Active Substance: ETANERCEPT
     Indication: PRODUCT USED FOR UNKNOWN INDICATION
     Dosage: 50 MILLIGRAM
     Route: 058
  4. SULFASALAZINE. [Concomitant]
     Active Substance: SULFASALAZINE
     Dosage: UNK

REACTIONS (2)
  - Breast cancer [Unknown]
  - Neoplasm malignant [Not Recovered/Not Resolved]
